FAERS Safety Report 17233470 (Version 1)
Quarter: 2020Q1

REPORT INFORMATION
  Report Type: Spontaneous
  Country: BE (occurrence: BE)
  Receive Date: 20200104
  Receipt Date: 20200104
  Transmission Date: 20200409
  Serious: Yes (Hospitalization, Other)
  Sender: FDA-Public Use
  Company Number: BE-BION-008471

PATIENT
  Age: 46 Year
  Sex: Male

DRUGS (6)
  1. CITALOPRAM [Suspect]
     Active Substance: CITALOPRAM HYDROBROMIDE
  2. LEFLUNOMIDE. [Concomitant]
     Active Substance: LEFLUNOMIDE
     Indication: RHEUMATOID ARTHRITIS
  3. IBUPROFEN. [Suspect]
     Active Substance: IBUPROFEN
  4. PARACETAMOL [Suspect]
     Active Substance: ACETAMINOPHEN
  5. TRAMADOL. [Suspect]
     Active Substance: TRAMADOL
  6. LORMETAZEPAM [Suspect]
     Active Substance: LORMETAZEPAM

REACTIONS (18)
  - PCO2 increased [Recovering/Resolving]
  - Intentional overdose [Unknown]
  - Loss of consciousness [Recovered/Resolved]
  - Acidosis [Recovering/Resolving]
  - Acute respiratory distress syndrome [Recovering/Resolving]
  - Troponin T increased [Recovering/Resolving]
  - Vomiting [Recovering/Resolving]
  - Aspartate aminotransferase increased [Recovering/Resolving]
  - Pulseless electrical activity [Recovering/Resolving]
  - Hypokalaemia [Recovering/Resolving]
  - Ketonuria [Recovering/Resolving]
  - Hyperinsulinaemia [Recovering/Resolving]
  - Multiple organ dysfunction syndrome [Recovering/Resolving]
  - Blood lactic acid increased [Recovering/Resolving]
  - Renal failure [Recovering/Resolving]
  - Pneumonia aspiration [Recovering/Resolving]
  - Oxygen saturation decreased [Recovering/Resolving]
  - Blood lactate dehydrogenase increased [Recovering/Resolving]
